FAERS Safety Report 19027809 (Version 1)
Quarter: 2021Q1

REPORT INFORMATION
  Report Type: Spontaneous
  Country: TH (occurrence: TH)
  Receive Date: 20210319
  Receipt Date: 20210319
  Transmission Date: 20210420
  Serious: Yes (Other)
  Sender: FDA-Public Use
  Company Number: TH-ROCHE-2792147

PATIENT
  Age: 40 Year
  Sex: Male

DRUGS (2)
  1. AVASTIN [Suspect]
     Active Substance: BEVACIZUMAB
     Indication: HEPATOCELLULAR CARCINOMA
     Route: 065
  2. TECENTRIQ [Suspect]
     Active Substance: ATEZOLIZUMAB
     Indication: HEPATOCELLULAR CARCINOMA
     Route: 041

REACTIONS (4)
  - Hyperthyroidism [Unknown]
  - Hepatitis [Unknown]
  - Haematocrit increased [Unknown]
  - Hypothyroidism [Unknown]
